FAERS Safety Report 5161098-9 (Version None)
Quarter: 2006Q4

REPORT INFORMATION
  Report Type: 
  Country: None (occurrence: None)
  Receive Date: 20061121
  Receipt Date: 20061106
  Transmission Date: 20070319
  Serious: Yes (Hospitalization)
  Sender: FDA-Public Use
  Company Number: 2006136623

PATIENT
  Age: 64 Year
  Sex: Male

DRUGS (1)
  1. SU-011,248 (SUNITINIB MALATE) [Suspect]
     Indication: METASTATIC RENAL CELL CARCINOMA
     Dosage: 37.5 MG (1 IN 1 D), ORAL
     Route: 048
     Dates: start: 20060202, end: 20061015

REACTIONS (1)
  - RENAL FAILURE ACUTE [None]
